FAERS Safety Report 8076969-3 (Version None)
Quarter: 2012Q1

REPORT INFORMATION
  Report Type: 
  Country: None (occurrence: None)
  Receive Date: 20120127
  Receipt Date: 20120123
  Transmission Date: 20120608
  Serious: Yes (Hospitalization)
  Sender: FDA-Public Use
  Company Number: US-GLAXOSMITHKLINE-A0915688A

PATIENT
  Age: 59 Year
  Sex: Male
  Weight: 97.7 kg

DRUGS (6)
  1. GLYBURIDE [Concomitant]
  2. ACCUPRIL [Concomitant]
  3. AVANDIA [Suspect]
     Indication: DIABETES MELLITUS
     Dosage: 4MG TWICE PER DAY
     Route: 048
     Dates: start: 20040301, end: 20071201
  4. GLUCOPHAGE [Concomitant]
  5. COZAAR [Concomitant]
  6. GLYNASE [Concomitant]

REACTIONS (8)
  - GAIT DISTURBANCE [None]
  - AMNESIA [None]
  - CARDIAC FAILURE CONGESTIVE [None]
  - ATRIAL FIBRILLATION [None]
  - CARDIOMYOPATHY [None]
  - CARDIAC DISORDER [None]
  - CARDIOVASCULAR DISORDER [None]
  - MACULAR OEDEMA [None]
